FAERS Safety Report 17537833 (Version 1)
Quarter: 2020Q1

REPORT INFORMATION
  Report Type: Spontaneous
  Country: CA (occurrence: CA)
  Receive Date: 20200313
  Receipt Date: 20200313
  Transmission Date: 20200409
  Serious: Yes (Other)
  Sender: FDA-Public Use
  Company Number: CA-PFIZER INC-2020109032

PATIENT
  Sex: Female

DRUGS (5)
  1. ZOFRAN [Suspect]
     Active Substance: ONDANSETRON HYDROCHLORIDE
     Indication: VOMITING
     Dosage: UNK
  2. HALDOL [Suspect]
     Active Substance: HALOPERIDOL
     Indication: SUBSTANCE USE
  3. HALDOL [Suspect]
     Active Substance: HALOPERIDOL
     Indication: VOMITING
     Dosage: UNK
  4. ZOLOFT [Suspect]
     Active Substance: SERTRALINE HYDROCHLORIDE
     Dosage: 100 MG, UNK
  5. ZOFRAN [Suspect]
     Active Substance: ONDANSETRON HYDROCHLORIDE
     Indication: SUBSTANCE USE

REACTIONS (5)
  - Muscle contractions involuntary [Unknown]
  - Oromandibular dystonia [Unknown]
  - Obstructive airways disorder [Unknown]
  - Tongue spasm [Unknown]
  - Akathisia [Unknown]
